FAERS Safety Report 20420891 (Version 1)
Quarter: 2022Q1

REPORT INFORMATION
  Report Type: Spontaneous
  Country: US (occurrence: None)
  Receive Date: 20220203
  Receipt Date: 20220203
  Transmission Date: 20220423
  Serious: Yes (Hospitalization)
  Sender: FDA-Public Use
  Company Number: None

PATIENT
  Sex: Female
  Weight: 53.5 kg

DRUGS (3)
  1. CARBOPLATIN [Suspect]
     Active Substance: CARBOPLATIN
     Dates: end: 20210125
  2. DURVALUMAB [Suspect]
     Active Substance: DURVALUMAB
     Dates: end: 20220113
  3. TAXOL [Suspect]
     Active Substance: PACLITAXEL
     Dates: end: 20210125

REACTIONS (3)
  - Pneumothorax [None]
  - Computerised tomogram abnormal [None]
  - Pneumonia [None]

NARRATIVE: CASE EVENT DATE: 20220122
